FAERS Safety Report 22127870 (Version 2)
Quarter: 2023Q1

REPORT INFORMATION
  Report Type: Report from Study
  Country: US (occurrence: US)
  Receive Date: 20230323
  Receipt Date: 20230327
  Transmission Date: 20230418
  Serious: No
  Sender: FDA-Public Use
  Company Number: US-002147023-NVSC2023US061773

PATIENT
  Sex: Male

DRUGS (2)
  1. GLEEVEC [Suspect]
     Active Substance: IMATINIB MESYLATE
     Indication: Product used for unknown indication
     Dosage: UNK UNK, QD (2 PILLS PER DAY)
     Route: 048
  2. GLEEVEC [Suspect]
     Active Substance: IMATINIB MESYLATE
     Dosage: UNK UNK, QD (1 PILL PER DAY)
     Route: 048

REACTIONS (5)
  - Gingival pain [Unknown]
  - Pain [Unknown]
  - Feeling abnormal [Unknown]
  - Sinusitis [Unknown]
  - Influenza [Unknown]
